FAERS Safety Report 14812822 (Version 1)
Quarter: 2018Q2

REPORT INFORMATION
  Report Type: Spontaneous
  Country: FR (occurrence: FR)
  Receive Date: 20180426
  Receipt Date: 20180426
  Transmission Date: 20180711
  Serious: Yes (Other)
  Sender: FDA-Public Use
  Company Number: FR-MERCK KGAA-2046529

PATIENT
  Age: 76 Year
  Sex: Female

DRUGS (1)
  1. NOVOTHYROX [Suspect]
     Active Substance: LEVOTHYROXINE SODIUM
     Indication: PRODUCT USED FOR UNKNOWN INDICATION

REACTIONS (18)
  - Hypotension [None]
  - Asthenia [None]
  - Hyperthyroidism [None]
  - Pain [None]
  - Dizziness [None]
  - Apathy [None]
  - Headache [None]
  - Tearfulness [None]
  - Morose [None]
  - Depressed mood [None]
  - Decreased interest [None]
  - Alopecia [None]
  - Hyperhidrosis [None]
  - Weight increased [None]
  - Infection [None]
  - Muscle spasms [None]
  - Fatigue [None]
  - Feeling cold [None]

NARRATIVE: CASE EVENT DATE: 20171016
